FAERS Safety Report 4544152-1 (Version None)
Quarter: 2005Q1

REPORT INFORMATION
  Report Type: 
  Country: None (occurrence: None)
  Receive Date: 20050104
  Receipt Date: 20041029
  Transmission Date: 20050727
  Serious: Yes (Other)
  Sender: FDA-Public Use
  Company Number: JP-GLAXOSMITHKLINE-B0350582A

PATIENT
  Age: 56 Year
  Sex: Female
  Weight: 54.8 kg

DRUGS (3)
  1. ZANTAC [Suspect]
     Indication: PROPHYLAXIS AGAINST GASTROINTESTINAL ULCER
     Route: 048
     Dates: start: 20040911, end: 20041012
  2. PREDNISOLONE [Concomitant]
     Indication: BRAIN OEDEMA
     Route: 048
     Dates: start: 20040915, end: 20041012
  3. RINDERON [Concomitant]
     Indication: BRAIN OEDEMA
     Dosage: 4MG PER DAY
     Route: 042
     Dates: start: 20040910, end: 20040912

REACTIONS (1)
  - INTERSTITIAL LUNG DISEASE [None]
